FAERS Safety Report 10529426 (Version 3)
Quarter: 2014Q4

REPORT INFORMATION
  Report Type: Spontaneous
  Country: US (occurrence: US)
  Receive Date: 20141021
  Receipt Date: 20141105
  Transmission Date: 20150528
  Serious: No
  Sender: FDA-Public Use
  Company Number: US-GILEAD-2014-0118837

PATIENT
  Age: 50 Year
  Sex: Male

DRUGS (5)
  1. REMODULIN [Concomitant]
     Active Substance: TREPROSTINIL
     Dosage: 15 NG, UNK
  2. ORENITRAM [Concomitant]
     Active Substance: TREPROSTINIL
  3. LETAIRIS [Suspect]
     Active Substance: AMBRISENTAN
     Indication: PRODUCT USED FOR UNKNOWN INDICATION
     Route: 065
     Dates: start: 20120215
  4. REVATIO [Concomitant]
     Active Substance: SILDENAFIL CITRATE
  5. REMODULIN [Concomitant]
     Active Substance: TREPROSTINIL
     Dosage: 20 NG, UNK

REACTIONS (5)
  - Unevaluable event [Unknown]
  - Pain in jaw [Unknown]
  - Pain in extremity [Unknown]
  - Musculoskeletal pain [Unknown]
  - Headache [Unknown]
